FAERS Safety Report 10678947 (Version 1)
Quarter: 2014Q4

REPORT INFORMATION
  Report Type: Spontaneous
  Country: FR (occurrence: FR)
  Receive Date: 20141229
  Receipt Date: 20141229
  Transmission Date: 20150529
  Serious: Yes (Other)
  Sender: FDA-Public Use
  Company Number: FR-SA-2014SA175772

PATIENT
  Age: 84 Year
  Sex: Female

DRUGS (2)
  1. LASILIX [Suspect]
     Active Substance: FUROSEMIDE
     Route: 065
  2. PREVISCAN [Suspect]
     Active Substance: FLUINDIONE
     Route: 065

REACTIONS (4)
  - Anaemia [Recovering/Resolving]
  - Overdose [Unknown]
  - Rectal haemorrhage [Recovered/Resolved]
  - Acute kidney injury [Recovered/Resolved]

NARRATIVE: CASE EVENT DATE: 2014
